FAERS Safety Report 5762169-6 (Version None)
Quarter: 2008Q2

REPORT INFORMATION
  Report Type: 
  Country: None (occurrence: None)
  Receive Date: 20080604
  Receipt Date: 20080430
  Transmission Date: 20081010
  Serious: Yes (Disabling)
  Sender: FDA-Public Use
  Company Number: 2008-00003

PATIENT
  Age: 35 Year
  Sex: Female
  Weight: 68.0396 kg

DRUGS (1)
  1. CLEAN + CLEAR ADVANTAGE ACNE SPOT TREATMENT (0.75OZ) [Suspect]
     Indication: ACNE
     Dosage: THIN LAYER 1X - 3X/DAY
     Dates: start: 20080420

REACTIONS (2)
  - APPLICATION SITE EXFOLIATION [None]
  - SCAR [None]
